FAERS Safety Report 6942854-0 (Version None)
Quarter: 2010Q3

REPORT INFORMATION
  Report Type: 
  Country: None (occurrence: None)
  Receive Date: 20100826
  Receipt Date: 20100813
  Transmission Date: 20110219
  Serious: Yes (Death)
  Sender: FDA-Public Use
  Company Number: SK-ELI_LILLY_AND_COMPANY-SK201008004828

PATIENT
  Age: 22 Year
  Sex: Male

DRUGS (3)
  1. ZYPADHERA [Suspect]
     Indication: SCHIZOPHRENIA
     Dosage: 300 MG EVER TWO WEEKS
     Route: 030
     Dates: start: 20100712
  2. ZYPADHERA [Suspect]
     Dosage: 405 MG, UNKNOWN
     Route: 065
     Dates: start: 20100726
  3. HALOPERIDOL [Concomitant]
     Indication: SCHIZOPHRENIA
     Dosage: UNK, UNKNOWN
     Route: 048
     Dates: start: 20100701

REACTIONS (1)
  - COMPLETED SUICIDE [None]
